FAERS Safety Report 18528341 (Version 1)
Quarter: 2020Q4

REPORT INFORMATION
  Report Type: Report from Study
  Country: US (occurrence: US)
  Receive Date: 20201120
  Receipt Date: 20201120
  Transmission Date: 20210114
  Serious: Yes (Hospitalization)
  Sender: FDA-Public Use
  Company Number: US-JNJFOC-A-NJ2018-175494

PATIENT
  Age: 66 Year
  Sex: Female
  Weight: 67.57 kg

DRUGS (34)
  1. UPTRAVI [Suspect]
     Active Substance: SELEXIPAG
     Dosage: 800 MCG, BID
     Route: 048
     Dates: start: 20181105
  2. ADCIRCA [Concomitant]
     Active Substance: TADALAFIL
     Dosage: 20 MG, UNK
  3. TRICOR [Concomitant]
     Active Substance: FENOFIBRATE
     Dosage: 145 MG, UNK
  4. SONATA [Concomitant]
     Active Substance: ZALEPLON
  5. UPTRAVI [Suspect]
     Active Substance: SELEXIPAG
     Dosage: UNK
     Route: 048
     Dates: start: 20180403
  6. AMBIEN [Concomitant]
     Active Substance: ZOLPIDEM TARTRATE
  7. REMERON [Concomitant]
     Active Substance: MIRTAZAPINE
     Dosage: 45 MG, UNK
  8. ZAROXOLYN [Concomitant]
     Active Substance: METOLAZONE
  9. LETAIRIS [Concomitant]
     Active Substance: AMBRISENTAN
     Dosage: 5 MG, UNK
  10. VITAMIN C [Concomitant]
     Active Substance: ASCORBIC ACID
     Dosage: 500 MG, UNK
  11. CELEBREX [Concomitant]
     Active Substance: CELECOXIB
  12. GLYCOLAX [Concomitant]
     Active Substance: POLYETHYLENE GLYCOL 3350
  13. ZOCOR [Concomitant]
     Active Substance: SIMVASTATIN
     Dosage: 20 MG, UNK
  14. WARFARIN [Concomitant]
     Active Substance: WARFARIN
  15. DICLOFENAC SODIUM. [Concomitant]
     Active Substance: DICLOFENAC SODIUM
     Dosage: 1 %, UNK
  16. OXYGEN. [Concomitant]
     Active Substance: OXYGEN
  17. PROZAC [Concomitant]
     Active Substance: FLUOXETINE HYDROCHLORIDE
  18. FLONASE [Concomitant]
     Active Substance: FLUTICASONE PROPIONATE
  19. LASIX [Concomitant]
     Active Substance: FUROSEMIDE
  20. MULTIVITAMIN [Concomitant]
     Active Substance: VITAMINS
  21. UPTRAVI [Suspect]
     Active Substance: SELEXIPAG
     Dosage: 200 MCG, BID
     Route: 048
  22. TYLENOL ARTHRITIS PAIN [Concomitant]
     Active Substance: ACETAMINOPHEN
     Dosage: 650 MG, UNK
  23. EXCEDRIN TENSION HEADACHE [Concomitant]
     Active Substance: ACETAMINOPHEN\CAFFEINE
  24. FIORICET [Concomitant]
     Active Substance: ACETAMINOPHEN\BUTALBITAL\CAFFEINE
     Dosage: 50-325-40
  25. BENADRYL [Concomitant]
     Active Substance: DIPHENHYDRAMINE HYDROCHLORIDE
     Dosage: 50 MG, UNK
  26. ZOFRAN [Concomitant]
     Active Substance: ONDANSETRON HYDROCHLORIDE
     Dosage: 4 MG, UNK
  27. PRILOSEC [Concomitant]
     Active Substance: OMEPRAZOLE MAGNESIUM
     Dosage: 20 MG, UNK
  28. K-DUR [Concomitant]
     Active Substance: POTASSIUM CHLORIDE
  29. COUMADIN [Concomitant]
     Active Substance: WARFARIN SODIUM
  30. COLCHICINE. [Concomitant]
     Active Substance: COLCHICINE
     Route: 048
  31. UPTRAVI [Suspect]
     Active Substance: SELEXIPAG
     Indication: PULMONARY ARTERIAL HYPERTENSION
     Dosage: 600 MCG, BID
     Route: 048
     Dates: start: 20181025
  32. UPTRAVI [Suspect]
     Active Substance: SELEXIPAG
     Dosage: 1000 MCG, BID
     Route: 048
     Dates: start: 20190226
  33. EFFEXOR [Concomitant]
     Active Substance: VENLAFAXINE HYDROCHLORIDE
  34. METOLAZONE. [Concomitant]
     Active Substance: METOLAZONE
     Dosage: 2.5 MG, TWICE WEEKLY

REACTIONS (19)
  - Pneumonia [Unknown]
  - Acute respiratory failure [Recovered/Resolved]
  - Dyspnoea [Recovered/Resolved]
  - Abdominal distension [Recovered/Resolved]
  - Appendicitis [Recovered/Resolved]
  - Renal pain [Recovered/Resolved]
  - Right ventricular failure [Recovered/Resolved]
  - Urosepsis [Recovered/Resolved]
  - Pyrexia [Recovered/Resolved]
  - Cardiac failure [Recovered/Resolved]
  - Abdominal pain lower [Recovered/Resolved]
  - Haematochezia [Recovered/Resolved]
  - Chills [Recovered/Resolved]
  - Weight increased [Recovered/Resolved]
  - Hypoxia [Not Recovered/Not Resolved]
  - Fluid retention [Unknown]
  - Brain natriuretic peptide increased [Recovered/Resolved]
  - Arthropathy [Unknown]
  - Respiratory tract infection [Not Recovered/Not Resolved]

NARRATIVE: CASE EVENT DATE: 2018
